FAERS Safety Report 8466549 (Version 5)
Quarter: 2013Q4

REPORT INFORMATION
  Report Type: Report from Study
  Country: JP (occurrence: JP)
  Receive Date: 20120319
  Receipt Date: 20131018
  Transmission Date: 20140711
  Serious: Yes (Hospitalization)
  Sender: FDA-Public Use
  Company Number: JP-ALLERGAN-1203132US

PATIENT
  Age: 63 Year
  Sex: Male

DRUGS (11)
  1. BLINDED DEX 0.35MG INS (9635X) [Suspect]
     Indication: MACULAR OEDEMA
     Dosage: UNK
     Route: 031
     Dates: start: 20110512, end: 20110512
  2. BLINDED DEX 0.7MG INS (9632X) [Suspect]
     Indication: MACULAR OEDEMA
     Dosage: UNK
     Route: 031
     Dates: start: 20110512, end: 20110512
  3. BLINDED DEX 0.35MG INS (9635X) [Suspect]
     Dosage: UNK
     Route: 031
     Dates: start: 20111117, end: 20111117
  4. BLINDED DEX 0.7MG INS (9632X) [Suspect]
     Dosage: UNK
     Route: 031
     Dates: start: 20111117, end: 20111117
  5. ZYRTEC [Concomitant]
     Indication: RHINITIS ALLERGIC
     Dosage: 10 MG, QD
     Dates: start: 20110512
  6. NICEPIE [Concomitant]
     Indication: RHINITIS ALLERGIC
     Dosage: 100 ?G, QD
     Dates: start: 20110512
  7. CADEMESIN [Concomitant]
     Indication: HYPERTENSION
     Dosage: 2 MG, QD
     Dates: start: 20110512
  8. NARCARICIN [Concomitant]
     Indication: GOUT
     Dosage: 25 G, QD
     Dates: start: 20110512
  9. TSUSANTOO [Concomitant]
     Indication: SCIATICA
     Dosage: UNK
     Dates: start: 20110617
  10. PRIMPERAN [Concomitant]
     Indication: NAUSEA
     Dosage: 5 MG, QD
     Dates: start: 20111202
  11. HALTHROW [Concomitant]
     Indication: BENIGN PROSTATIC HYPERPLASIA
     Dosage: 0.2 MG, QD
     Dates: start: 20120117

REACTIONS (1)
  - Glaucoma [Recovered/Resolved]
